FAERS Safety Report 7873364-4 (Version None)
Quarter: 2011Q4

REPORT INFORMATION
  Report Type: 
  Country: None (occurrence: None)
  Receive Date: 20111030
  Receipt Date: 20110503
  Transmission Date: 20120403
  Serious: No
  Sender: FDA-Public Use
  Company Number: US-AMGEN-USASP2011022923

PATIENT
  Age: 53 Year
  Sex: Female

DRUGS (1)
  1. ENBREL [Suspect]
     Indication: RHEUMATOID ARTHRITIS
     Dates: start: 20110120

REACTIONS (9)
  - INJECTION SITE HAEMATOMA [None]
  - HANGNAIL [None]
  - JOINT SWELLING [None]
  - INJECTION SITE REACTION [None]
  - LOCALISED INFECTION [None]
  - FALL [None]
  - INJECTION SITE PAIN [None]
  - ARTHRALGIA [None]
  - CONTUSION [None]
